FAERS Safety Report 15287927 (Version 2)
Quarter: 2018Q3

REPORT INFORMATION
  Report Type: Spontaneous
  Country: US (occurrence: US)
  Receive Date: 20180817
  Receipt Date: 20180822
  Transmission Date: 20181010
  Serious: Yes (Death, Other)
  Sender: FDA-Public Use
  Company Number: US-TEVA-2018-US-941321

PATIENT
  Age: 93 Year
  Sex: Female

DRUGS (2)
  1. MIRTAZAPINE. [Suspect]
     Active Substance: MIRTAZAPINE
     Indication: SEDATION
     Route: 065
     Dates: end: 20180703
  2. MIRTAZAPINE. [Suspect]
     Active Substance: MIRTAZAPINE
     Indication: ABNORMAL BEHAVIOUR
     Dates: end: 20180703

REACTIONS (6)
  - Leukaemia [Unknown]
  - Fatigue [Unknown]
  - Headache [Unknown]
  - Death [Fatal]
  - Hip fracture [Unknown]
  - Renal failure [Unknown]

NARRATIVE: CASE EVENT DATE: 20180703
